FAERS Safety Report 22028932 (Version 2)
Quarter: 2023Q2

REPORT INFORMATION
  Report Type: Spontaneous
  Country: JP (occurrence: JP)
  Receive Date: 20230223
  Receipt Date: 20230427
  Transmission Date: 20230721
  Serious: Yes (Death, Other)
  Sender: FDA-Public Use
  Company Number: JP-MSD-M2023-07055

PATIENT
  Age: 67 Year
  Sex: Male

DRUGS (3)
  1. KEYTRUDA [Suspect]
     Active Substance: PEMBROLIZUMAB
     Indication: Non-small cell lung cancer stage IV
     Dosage: 200 MILLIGRAM, Q3W
     Route: 041
     Dates: start: 202301, end: 202302
  2. PEMETREXED DISODIUM [Concomitant]
     Active Substance: PEMETREXED DISODIUM
     Dosage: 500 MILLIGRAM/SQ. METER, Q3W
     Route: 041
     Dates: start: 202301, end: 202302
  3. CISPLATIN [Concomitant]
     Active Substance: CISPLATIN
     Dosage: 75 MILLIGRAM/SQ. METER, Q3W
     Route: 065
     Dates: start: 202301, end: 202302

REACTIONS (1)
  - Immune-mediated hepatitis [Fatal]

NARRATIVE: CASE EVENT DATE: 20230201
